FAERS Safety Report 9076255 (Version 1)
Quarter: 2013Q1

REPORT INFORMATION
  Report Type: Report from Study
  Country: US (occurrence: US)
  Receive Date: 20130129
  Receipt Date: 20130129
  Transmission Date: 20140127
  Serious: Yes (Other)
  Sender: FDA-Public Use
  Company Number: US-ABBOTT-12P-163-0926986-00

PATIENT
  Age: 44 None
  Sex: Female
  Weight: 63.56 kg

DRUGS (6)
  1. HUMIRA 40 MG/0.8 ML PEN [Suspect]
     Indication: CROHN^S DISEASE
     Route: 058
     Dates: start: 201001, end: 201205
  2. CANASA [Concomitant]
     Indication: CROHN^S DISEASE
  3. PROBIOTICS [Concomitant]
     Indication: CROHN^S DISEASE
  4. ASACOL [Concomitant]
     Indication: CROHN^S DISEASE
  5. MIRALAX [Concomitant]
     Indication: CROHN^S DISEASE
  6. CORTIFOAM [Concomitant]
     Indication: CROHN^S DISEASE

REACTIONS (5)
  - Multiple sclerosis [Not Recovered/Not Resolved]
  - Hypoaesthesia [Not Recovered/Not Resolved]
  - Paraesthesia [Not Recovered/Not Resolved]
  - Demyelination [Not Recovered/Not Resolved]
  - Demyelination [Not Recovered/Not Resolved]
